FAERS Safety Report 18556728 (Version 4)
Quarter: 2021Q1

REPORT INFORMATION
  Report Type: Report from Study
  Country: US (occurrence: US)
  Receive Date: 20201128
  Receipt Date: 20210209
  Transmission Date: 20210419
  Serious: Yes (Other)
  Sender: FDA-Public Use
  Company Number: NVSC2020US310279

PATIENT
  Sex: Female

DRUGS (1)
  1. PIQRAY [Suspect]
     Active Substance: ALPELISIB
     Indication: PRODUCT USED FOR UNKNOWN INDICATION
     Dosage: UNK
     Route: 048

REACTIONS (9)
  - Malaise [Unknown]
  - Dyspnoea [Unknown]
  - Abdominal discomfort [Unknown]
  - Intestinal obstruction [Unknown]
  - Asthenia [Unknown]
  - Stomatitis [Unknown]
  - Pleural effusion [Unknown]
  - Diarrhoea [Unknown]
  - Weight decreased [Unknown]
